FAERS Safety Report 4654791-5 (Version None)
Quarter: 2005Q2

REPORT INFORMATION
  Report Type: 
  Country: None (occurrence: None)
  Receive Date: 20050506
  Receipt Date: 20050427
  Transmission Date: 20051028
  Serious: Yes (Other)
  Sender: FDA-Public Use
  Company Number: JP-ROCHE-403241

PATIENT
  Age: 9 Month
  Sex: Female

DRUGS (1)
  1. TAMIFLU [Suspect]
     Route: 048
     Dates: start: 20050218, end: 20050221

REACTIONS (2)
  - BODY TEMPERATURE DECREASED [None]
  - HYPOTHERMIA [None]
